FAERS Safety Report 16017217 (Version 1)
Quarter: 2019Q1

REPORT INFORMATION
  Report Type: Report from Study
  Country: US (occurrence: US)
  Receive Date: 20190228
  Receipt Date: 20190228
  Transmission Date: 20190418
  Serious: Yes (Other)
  Sender: FDA-Public Use
  Company Number: US-ASTELLAS-2018US046120

PATIENT
  Sex: Male

DRUGS (1)
  1. ENZALUTAMIDE [Suspect]
     Active Substance: ENZALUTAMIDE
     Indication: PROSTATE CANCER
     Route: 048
     Dates: start: 201810

REACTIONS (6)
  - Influenza like illness [Not Recovered/Not Resolved]
  - Pollakiuria [Unknown]
  - Blood pressure increased [Not Recovered/Not Resolved]
  - Urinary retention [Unknown]
  - Micturition urgency [Unknown]
  - Fatigue [Not Recovered/Not Resolved]
